FAERS Safety Report 4592053-5 (Version None)
Quarter: 2005Q1

REPORT INFORMATION
  Report Type: 
  Country: None (occurrence: None)
  Receive Date: 20050225
  Receipt Date: 20050217
  Transmission Date: 20050727
  Serious: Yes (Hospitalization, Other)
  Sender: FDA-Public Use
  Company Number: CH-GLAXOSMITHKLINE-B0372699A

PATIENT
  Age: 62 Year
  Sex: Male
  Weight: 72 kg

DRUGS (2)
  1. AUGMENTIN '125' [Suspect]
     Indication: AMPUTATION
     Dosage: 1G SEE DOSAGE TEXT
     Route: 048
     Dates: start: 20041116, end: 20041121
  2. ACETAMINOPHEN [Suspect]
     Indication: AMPUTATION
     Dosage: 2G PER DAY
     Route: 048
     Dates: start: 20041116, end: 20041117

REACTIONS (10)
  - ALANINE AMINOTRANSFERASE INCREASED [None]
  - ASPARTATE AMINOTRANSFERASE INCREASED [None]
  - BLOOD ALKALINE PHOSPHATASE INCREASED [None]
  - BLOOD BILIRUBIN INCREASED [None]
  - BLOOD CREATINE PHOSPHOKINASE INCREASED [None]
  - GAMMA-GLUTAMYLTRANSFERASE INCREASED [None]
  - HEPATITIS [None]
  - HEPATITIS CHOLESTATIC [None]
  - JAUNDICE [None]
  - LIVER FUNCTION TEST ABNORMAL [None]
